FAERS Safety Report 7981624-1 (Version None)
Quarter: 2011Q4

REPORT INFORMATION
  Report Type: 
  Country: None (occurrence: None)
  Receive Date: 20111215
  Receipt Date: 20111207
  Transmission Date: 20120403
  Serious: Yes (Other)
  Sender: FDA-Public Use
  Company Number: AU-BRISTOL-MYERS SQUIBB COMPANY-16153520

PATIENT
  Age: 37 Year
  Sex: Male
  Weight: 80 kg

DRUGS (4)
  1. RITONAVIR [Suspect]
     Indication: HIV INFECTION
     Dates: start: 20100504
  2. REYATAZ [Suspect]
     Indication: HIV INFECTION
     Route: 048
     Dates: start: 20100504
  3. TRUVADA [Suspect]
     Indication: HIV INFECTION
     Route: 048
     Dates: start: 20091123
  4. KEFLEX [Concomitant]
     Indication: FURUNCLE

REACTIONS (3)
  - YELLOW SKIN [None]
  - FURUNCLE [None]
  - OCULAR ICTERUS [None]
